FAERS Safety Report 26147906 (Version 1)
Quarter: 2025Q4

REPORT INFORMATION
  Report Type: Report from Study
  Country: CA (occurrence: CA)
  Receive Date: 20251212
  Receipt Date: 20251212
  Transmission Date: 20260119
  Serious: Yes (Death)
  Sender: ABBVIE
  Company Number: CA-ABBVIE-6586973

PATIENT
  Age: 65 Year
  Sex: Male

DRUGS (1)
  1. RINVOQ [Suspect]
     Active Substance: UPADACITINIB
     Indication: Psoriatic arthropathy
     Dosage: 15MG
     Route: 048

REACTIONS (1)
  - Death [Fatal]

NARRATIVE: CASE EVENT DATE: 20250101
